FAERS Safety Report 25462358 (Version 1)
Quarter: 2025Q2

REPORT INFORMATION
  Report Type: Spontaneous
  Country: US (occurrence: US)
  Receive Date: 20250620
  Receipt Date: 20250620
  Transmission Date: 20250716
  Serious: Yes (Other)
  Sender: TEVA
  Company Number: US-TEVA-VS-3341647

PATIENT
  Age: 64 Year
  Sex: Female

DRUGS (1)
  1. CARBIDOPA AND LEVODOPA [Suspect]
     Active Substance: CARBIDOPA\LEVODOPA
     Indication: Product used for unknown indication
     Dosage: 25 MG-100 MG
     Route: 048

REACTIONS (14)
  - Hallucination [Unknown]
  - Psychotic disorder [Unknown]
  - Headache [Unknown]
  - Discomfort [Unknown]
  - Panic attack [Unknown]
  - Nightmare [Unknown]
  - Dry mouth [Unknown]
  - Tremor [Unknown]
  - Crying [Unknown]
  - Gait inability [Unknown]
  - Musculoskeletal stiffness [Unknown]
  - Therapeutic response shortened [Unknown]
  - Anxiety [Unknown]
  - Muscle tightness [Unknown]
